FAERS Safety Report 24606454 (Version 2)
Quarter: 2025Q1

REPORT INFORMATION
  Report Type: Spontaneous
  Country: NL (occurrence: NL)
  Receive Date: 20241112
  Receipt Date: 20250101
  Transmission Date: 20250409
  Serious: Yes (Hospitalization)
  Sender: TEVA
  Company Number: None

PATIENT
  Age: 54 Year
  Sex: Male
  Weight: 62 kg

DRUGS (1)
  1. PREDNISONE [Suspect]
     Active Substance: PREDNISONE
     Indication: Sarcoidosis
     Dosage: 1 X DAILY, BRAND NAME NOT SPECIFIED
     Route: 065
     Dates: start: 20100101, end: 20180401

REACTIONS (2)
  - Meningitis cryptococcal [Recovered/Resolved]
  - Hydrocephalus [Recovered/Resolved]
